FAERS Safety Report 5854998-5 (Version None)
Quarter: 2008Q3

REPORT INFORMATION
  Report Type: 
  Country: None (occurrence: None)
  Receive Date: 20080822
  Receipt Date: 20080505
  Transmission Date: 20090109
  Serious: No
  Sender: FDA-Public Use
  Company Number: US-ABBOTT-08P-163-0450371-00

PATIENT
  Sex: Female
  Weight: 51.302 kg

DRUGS (4)
  1. SYNTHROID [Suspect]
     Indication: HYPOTHYROIDISM
     Route: 048
  2. SYNTHROID [Suspect]
     Dates: start: 20080301
  3. HYDROXYCHLOROQUINE SULFATE [Concomitant]
     Indication: SYSTEMIC LUPUS ERYTHEMATOSUS
     Dosage: 200 MILLIGRAM 1 1/2 ONCE A DAY
     Dates: start: 20060101
  4. NIFEDIPINE [Concomitant]
     Indication: BLOOD PRESSURE
     Route: 048
     Dates: start: 20070101

REACTIONS (3)
  - BLOOD THYROID STIMULATING HORMONE INCREASED [None]
  - HYPERTHYROIDISM [None]
  - WEIGHT GAIN POOR [None]
